FAERS Safety Report 19475320 (Version 2)
Quarter: 2021Q3

REPORT INFORMATION
  Report Type: Report from Study
  Country: CO (occurrence: CO)
  Receive Date: 20210629
  Receipt Date: 20210823
  Transmission Date: 20211014
  Serious: Yes (Hospitalization)
  Sender: FDA-Public Use
  Company Number: CO-ARBOR PHARMACEUTICALS, LLC-CO-2021ARB000768

PATIENT
  Age: 9 Year
  Sex: Female

DRUGS (3)
  1. TRIPTODUR [Suspect]
     Active Substance: TRIPTORELIN
     Indication: PRECOCIOUS PUBERTY
     Dosage: 11.25 MG, UNK
     Route: 030
     Dates: start: 20210311, end: 20210528
  2. TRIPTODUR [Suspect]
     Active Substance: TRIPTORELIN
  3. TRIPTODUR [Suspect]
     Active Substance: TRIPTORELIN

REACTIONS (5)
  - Gait inability [Not Recovered/Not Resolved]
  - Administration site pain [Not Recovered/Not Resolved]
  - Administration site inflammation [Not Recovered/Not Resolved]
  - Administration site haematoma [Unknown]
  - Application site hypoaesthesia [Unknown]

NARRATIVE: CASE EVENT DATE: 20210528
